FAERS Safety Report 10052979 (Version 1)
Quarter: 2014Q1

REPORT INFORMATION
  Report Type: Spontaneous
  Country: None (occurrence: None)
  Receive Date: 20140331
  Receipt Date: 20140331
  Transmission Date: 20141002
  Serious: Yes (Hospitalization)
  Sender: FDA-Public Use
  Company Number: ACET20140007

PATIENT
  Age: 60 Year
  Sex: Male

DRUGS (1)
  1. Q-PAP [Suspect]
     Indication: UPPER RESPIRATORY TRACT INFECTION
     Route: 048

REACTIONS (10)
  - Haemoglobin decreased [None]
  - Protein total decreased [None]
  - Blood albumin decreased [None]
  - Blood sodium decreased [None]
  - Blood potassium decreased [None]
  - Blood phosphorus decreased [None]
  - Blood calcium decreased [None]
  - Blood uric acid decreased [None]
  - Stevens-Johnson syndrome [None]
  - Toxic epidermal necrolysis [None]
